FAERS Safety Report 21891512 (Version 1)
Quarter: 2023Q1

REPORT INFORMATION
  Report Type: Spontaneous
  Country: BE (occurrence: BE)
  Receive Date: 20230120
  Receipt Date: 20230120
  Transmission Date: 20230417
  Serious: Yes (Hospitalization)
  Sender: FDA-Public Use
  Company Number: None

PATIENT
  Age: 45 Year
  Sex: Female
  Weight: 73 kg

DRUGS (18)
  1. CARBOPLATIN [Suspect]
     Active Substance: CARBOPLATIN
     Dosage: UNK
     Dates: end: 20220914
  2. MOVICOL [Concomitant]
     Active Substance: POLYETHYLENE GLYCOL 3350\POTASSIUM CHLORIDE\SODIUM BICARBONATE\SODIUM CHLORIDE
     Indication: Constipation
     Dosage: 1 SACHET FOR CONSTIPATION
  3. ALIZAPRIDE [Concomitant]
     Active Substance: ALIZAPRIDE
     Indication: Nausea
     Dosage: 1 TABLET FOR NAUSEA, MAX 6/DAY
  4. PRIMPERAN [Concomitant]
     Active Substance: METOCLOPRAMIDE HYDROCHLORIDE
     Indication: Nausea
     Dosage: 10 MG 1 TABLET FOR NAUSEA EVERY 8 HOURS
  5. MOTILIUM [Concomitant]
     Active Substance: DOMPERIDONE
     Indication: Nausea
     Dosage: 10 MG 1 TABLET FOR NAUSEA, HALF AN HOUR BEFORE A MEAL, MAX 3 TIMES A DAY
  6. SERTRALINE HYDROCHLORIDE [Concomitant]
     Active Substance: SERTRALINE HYDROCHLORIDE
     Dosage: 25 MG, 1X/DAY AFTER 5-7 DAYS INCREASE TO 50MG/DAY
  7. TRAZODONE HYDROCHLORIDE [Concomitant]
     Active Substance: TRAZODONE HYDROCHLORIDE
     Dosage: 50 MG, 1X/DAY
  8. EUTHYROX [Concomitant]
     Active Substance: LEVOTHYROXINE SODIUM
     Dosage: 75 UG, 1X/DAY 2 MORE DAYS: 16-17SEP THEN STOP
  9. BECLOMETHASONE DIPROPIONATE\FORMOTEROL FUMARATE [Concomitant]
     Active Substance: BECLOMETHASONE DIPROPIONATE\FORMOTEROL FUMARATE
     Dosage: 2 INHALATIONS DAILY, RINSE MOUTH AFTER USE
  10. SODIUM PICOSULFATE [Concomitant]
     Active Substance: SODIUM PICOSULFATE
     Indication: Constipation
     Dosage: 5 DROPS IN CASE OF PERSISTENT CONSTIPATION
  11. LIDOCAINE [Concomitant]
     Active Substance: LIDOCAINE
     Dosage: HYDROCORTISONE 1%, LIDOCAINE 5% ORAL FOR CANKER SORES TMF: 5X DAILY TO APPLY LOCALLY ON CANKER SORE
  12. MAGNESIUM GLUCONATE [Concomitant]
     Active Substance: MAGNESIUM GLUCONATE
     Dosage: 3 G, 1X/DAY
  13. MEDROL [Concomitant]
     Active Substance: METHYLPREDNISOLONE
     Dosage: 1 TABLET ON 16SEP AND 17SEP THEN STOP
  14. HYDROCORTISONE ACETATE [Concomitant]
     Active Substance: HYDROCORTISONE ACETATE
     Dosage: HYDROCORTISONE 1%, LIDOCAINE 5% ORAL FOR CANKER SORES TMF: 5X DAILY TO APPLY LOCALLY ON CANKER SORE
  15. CETIRIZIN AB [Concomitant]
     Dosage: 10 MG, 1X/DAY 2 MORE DAYS: 16-17/09 THEN STOP
  16. ATORVASTATIN [Concomitant]
     Active Substance: ATORVASTATIN
     Dosage: 20 MG, 1X/DAY
  17. LORAZEPAM [Concomitant]
     Active Substance: LORAZEPAM
     Dosage: 0.5 TABLET AT EXHAUSTION, MAX 2/DAY
  18. RABEPRAZOLE SODIUM [Concomitant]
     Active Substance: RABEPRAZOLE SODIUM
     Dosage: 10 MG, 1X/DAY

REACTIONS (5)
  - Dyspnoea [Unknown]
  - Rash [Unknown]
  - Hypertension [Unknown]
  - Dizziness [Unknown]
  - Tachycardia [Unknown]

NARRATIVE: CASE EVENT DATE: 20220914
